FAERS Safety Report 13474327 (Version 1)
Quarter: 2017Q2

REPORT INFORMATION
  Report Type: Spontaneous
  Country: US (occurrence: US)
  Receive Date: 20170424
  Receipt Date: 20170424
  Transmission Date: 20170830
  Serious: Yes (Other)
  Sender: FDA-Public Use
  Company Number: US-TEVA-762930USA

PATIENT
  Sex: Male

DRUGS (2)
  1. OMEPRAZOLE DELAYED RELEASE CAPSULES,10 MG, 20 MG AND 30 MG [Suspect]
     Active Substance: OMEPRAZOLE
     Indication: ULCER
     Route: 065
  2. ALUMINUM AND MAGNESIUM [Concomitant]
     Indication: ULCER

REACTIONS (2)
  - Peptic ulcer [Unknown]
  - Drug ineffective [Unknown]
